FAERS Safety Report 8492047-3 (Version None)
Quarter: 2012Q3

REPORT INFORMATION
  Report Type: 
  Country: None (occurrence: None)
  Receive Date: 20120706
  Receipt Date: 20120702
  Transmission Date: 20120928
  Serious: Yes (Other)
  Sender: FDA-Public Use
  Company Number: US-PFIZER INC-2012122450

PATIENT
  Sex: Female
  Weight: 54.422 kg

DRUGS (1)
  1. EPIPEN [Suspect]
     Dosage: UNK
     Route: 030
     Dates: start: 20120518, end: 20120518

REACTIONS (6)
  - INJECTION SITE PAIN [None]
  - INJECTION SITE PALLOR [None]
  - ACCIDENTAL EXPOSURE [None]
  - NEURALGIA [None]
  - HYPOAESTHESIA [None]
  - MUSCULAR WEAKNESS [None]
